FAERS Safety Report 9246490 (Version 1)
Quarter: 2013Q2

REPORT INFORMATION
  Report Type: Report from Study
  Country: US (occurrence: US)
  Receive Date: 20130422
  Receipt Date: 20130422
  Transmission Date: 20140414
  Serious: No
  Sender: FDA-Public Use
  Company Number: US-ABBOTT-12P-163-0932531-00

PATIENT
  Sex: Male
  Weight: 37.68 kg

DRUGS (2)
  1. LUPRON DEPOT-PED 11.25 MG [Suspect]
     Indication: PRECOCIOUS PUBERTY
     Dates: start: 20110912
  2. MICRONUTRIENTS [Concomitant]
     Indication: SUPPLEMENTATION THERAPY

REACTIONS (4)
  - Visual impairment [Unknown]
  - Visual acuity tests abnormal [Unknown]
  - Visual impairment [Unknown]
  - Vision blurred [Unknown]
